FAERS Safety Report 9928192 (Version 1)
Quarter: 2014Q1

REPORT INFORMATION
  Report Type: Spontaneous
  Country: US (occurrence: US)
  Receive Date: 20140227
  Receipt Date: 20140227
  Transmission Date: 20141002
  Serious: Yes (Death, Life-Threatening, Hospitalization, Other)
  Sender: FDA-Public Use
  Company Number: US-JNJFOC-20140216241

PATIENT
  Age: 65 Year
  Sex: Male

DRUGS (2)
  1. XARELTO [Suspect]
     Indication: PRODUCT USED FOR UNKNOWN INDICATION
     Route: 048
  2. SODIUM CHLORIDE [Concomitant]
     Route: 040

REACTIONS (8)
  - Ventricle rupture [Fatal]
  - Ventricular fibrillation [Fatal]
  - Rebound effect [Unknown]
  - Coronary artery thrombosis [Unknown]
  - Cardiac arrest [Unknown]
  - Pulseless electrical activity [Unknown]
  - Pericardial effusion [Unknown]
  - Myocardial ischaemia [Unknown]
